FAERS Safety Report 7530268-4 (Version None)
Quarter: 2011Q2

REPORT INFORMATION
  Report Type: 
  Country: None (occurrence: None)
  Receive Date: 20110531
  Receipt Date: 20110519
  Transmission Date: 20111010
  Serious: Yes (Death)
  Sender: FDA-Public Use
  Company Number: JP-2011-10819

PATIENT
  Sex: Female

DRUGS (2)
  1. LASIX [Concomitant]
  2. SAMSCA [Suspect]
     Indication: CARDIAC FAILURE
     Dosage: 15 MG MILLIGRAMS, QD, ORAL
     Route: 048
     Dates: start: 20110501

REACTIONS (2)
  - CONDITION AGGRAVATED [None]
  - CARDIAC FAILURE [None]
